FAERS Safety Report 24565279 (Version 1)
Quarter: 2024Q4

REPORT INFORMATION
  Report Type: Spontaneous
  Country: GB (occurrence: GB)
  Receive Date: 20241030
  Receipt Date: 20241030
  Transmission Date: 20250115
  Serious: Yes (Other)
  Sender: TEVA
  Company Number: GB-MHRA-TPP42864194C4457335YC1729853758550

PATIENT
  Age: 73 Year
  Sex: Female
  Weight: 65 kg

DRUGS (10)
  1. ROSUVASTATIN [Suspect]
     Active Substance: ROSUVASTATIN
     Indication: Ill-defined disorder
     Route: 065
     Dates: start: 20240503
  2. ALBUTEROL [Concomitant]
     Active Substance: ALBUTEROL
     Indication: Ill-defined disorder
     Dosage: INHALE TWO DOSES AS NEEDED THROUGH SPACER (INHA...
     Route: 055
     Dates: start: 20240219
  3. LANSOPRAZOLE [Concomitant]
     Active Substance: LANSOPRAZOLE
     Indication: Ill-defined disorder
     Dosage: IN MORNING;
     Dates: start: 20240110
  4. SPIRIVA [Concomitant]
     Active Substance: TIOTROPIUM BROMIDE MONOHYDRATE
     Indication: Ill-defined disorder
     Dosage: INHALE TWO DOSES ONCE DAILY (INHALE SLOWLY AND ...
     Route: 055
     Dates: start: 20240219
  5. BISOPROLOL [Concomitant]
     Active Substance: BISOPROLOL\BISOPROLOL FUMARATE
     Indication: Ill-defined disorder
     Dates: start: 20240110
  6. EASYCHAMBER SPACER [Concomitant]
     Indication: Ill-defined disorder
     Dosage: USE AS DIRECTED WITH SALAMOL INHALER
     Dates: start: 20241025
  7. ROSUVASTATIN [Concomitant]
     Active Substance: ROSUVASTATIN
     Indication: Ill-defined disorder
     Dates: start: 20240110, end: 20241025
  8. ASPIRIN [Concomitant]
     Active Substance: ASPIRIN
     Indication: Ill-defined disorder
     Dates: start: 20240110
  9. EZETIMIBE [Concomitant]
     Active Substance: EZETIMIBE
     Indication: Ill-defined disorder
     Dates: start: 20240110
  10. RAMIPRIL [Concomitant]
     Active Substance: RAMIPRIL
     Indication: Ill-defined disorder
     Dates: start: 20240110

REACTIONS (1)
  - Liver function test abnormal [Recovered/Resolved]

NARRATIVE: CASE EVENT DATE: 20240503
